FAERS Safety Report 23800781 (Version 1)
Quarter: 2024Q2

REPORT INFORMATION
  Report Type: Spontaneous
  Country: IN (occurrence: None)
  Receive Date: 20240426
  Receipt Date: 20240426
  Transmission Date: 20240716
  Serious: No
  Sender: FDA-Public Use
  Company Number: None

PATIENT
  Age: 35 Year
  Sex: Female
  Weight: 70 kg

DRUGS (2)
  1. ASPIRIN [Suspect]
     Active Substance: ASPIRIN
     Indication: Deep vein thrombosis
     Dosage: 75 MG TWICE A DAY ORAL?
     Route: 048
     Dates: start: 20230401
  2. RIVAROXABAN [Suspect]
     Active Substance: RIVAROXABAN
     Indication: Deep vein thrombosis
     Dosage: 15 MG TWICE A DAY ORAL?
     Route: 048
     Dates: start: 20230424, end: 20230429

REACTIONS (5)
  - Heavy menstrual bleeding [None]
  - Asthenia [None]
  - Abdominal pain [None]
  - Pain in extremity [None]
  - Drug interaction [None]

NARRATIVE: CASE EVENT DATE: 20230428
